FAERS Safety Report 6474330-6 (Version None)
Quarter: 2009Q4

REPORT INFORMATION
  Report Type: 
  Country: None (occurrence: None)
  Receive Date: 20091204
  Receipt Date: 20091126
  Transmission Date: 20100525
  Serious: Yes (Hospitalization)
  Sender: FDA-Public Use
  Company Number: GXKR2009GB12855

PATIENT
  Age: 68 Year
  Sex: Female

DRUGS (16)
  1. DOXYCYCLINE (NGX) [Suspect]
     Indication: EAR PAIN
     Dosage: 100 MG, UNK
     Dates: start: 20081027, end: 20081028
  2. ADCAL-D3 [Concomitant]
  3. BETAHISTINE [Concomitant]
     Dosage: 8 MG, UNK
  4. BISOPROLOL [Concomitant]
     Dosage: 2.5 MG, UNK
  5. FOLIC ACID [Concomitant]
     Dosage: 5 MG, UNK
  6. FUROSEMIDE [Concomitant]
     Dosage: 40 MG, UNK
  7. GLICLAZIDE [Concomitant]
     Dosage: 80 MG, UNK
  8. GLYCERYL TRINITRATE [Concomitant]
     Dosage: 400 MG, UNK
  9. LANSOPRAZOLE [Concomitant]
     Dosage: 30 MG, UNK
  10. MEBEVERINE HYDROCHLORIDE [Concomitant]
     Dosage: 135 MG, UNK
  11. METFORMIN HCL [Concomitant]
     Dosage: 500 MG, UNK
  12. METHOTREXATE [Concomitant]
     Dosage: 2.5 MG, UNK
  13. PREDNISOLONE [Concomitant]
     Dosage: 2.5 MG, UNK
  14. PROCHLORPERAZINE MALEATE [Concomitant]
     Dosage: 5 MG, UNK
  15. TRAMADOL HCL [Concomitant]
     Dosage: 50 MG, UNK
  16. LOSARTAN [Concomitant]

REACTIONS (2)
  - ANGINA PECTORIS [None]
  - DYSPEPSIA [None]
